FAERS Safety Report 14277872 (Version 1)
Quarter: 2017Q4

REPORT INFORMATION
  Report Type: Spontaneous
  Country: US (occurrence: US)
  Receive Date: 20171212
  Receipt Date: 20171212
  Transmission Date: 20180321
  Serious: No
  Sender: FDA-Public Use
  Company Number: US-BAUSCH-BL-2017-019097

PATIENT
  Sex: Male

DRUGS (1)
  1. SYPRINE [Suspect]
     Active Substance: TRIENTINE HYDROCHLORIDE
     Indication: PRODUCT USED FOR UNKNOWN INDICATION
     Dosage: TAKES 3 CAPSULE (750 MG) TWO TIMES DAILY, EITHER 1 HOUR BEFORE OR 2 HOUR AFTER EATING BRAEKFAST AND

REACTIONS (1)
  - Drug dose omission [Unknown]
